FAERS Safety Report 11722594 (Version 4)
Quarter: 2016Q2

REPORT INFORMATION
  Report Type: Spontaneous
  Country: US (occurrence: US)
  Receive Date: 20151111
  Receipt Date: 20160412
  Transmission Date: 20160815
  Serious: Yes (Other)
  Sender: FDA-Public Use
  Company Number: US-MDT-ADR-2015-02115

PATIENT
  Age: 55 Year
  Sex: Female

DRUGS (10)
  1. IMITREX [Suspect]
     Active Substance: SUMATRIPTAN SUCCINATE
  2. BACLOFEN. [Suspect]
     Active Substance: BACLOFEN
     Dosage: 11 MCG/DAY
     Route: 037
  3. SEROQUEL [Suspect]
     Active Substance: QUETIAPINE FUMARATE
  4. MORPHINE [Suspect]
     Active Substance: MORPHINE
     Dosage: 2.2 MG/DAY
     Route: 037
  5. MORPHINE [Suspect]
     Active Substance: MORPHINE
     Route: 048
  6. HYDROMORPHONE [Suspect]
     Active Substance: HYDROMORPHONE
     Dosage: 0.11 MG/DAY
     Route: 037
  7. NEURONTIN [Suspect]
     Active Substance: GABAPENTIN
  8. VISTARIL [Suspect]
     Active Substance: HYDROXYZINE PAMOATE
  9. LIDOCAINE. [Suspect]
     Active Substance: LIDOCAINE
     Route: 061
  10. COUMADIN [Suspect]
     Active Substance: WARFARIN SODIUM

REACTIONS (16)
  - Back pain [Not Recovered/Not Resolved]
  - Device malfunction [None]
  - Pain [Not Recovered/Not Resolved]
  - Condition aggravated [Not Recovered/Not Resolved]
  - Malaise [Unknown]
  - Neuralgia [Not Recovered/Not Resolved]
  - Spinal cord compression [Not Recovered/Not Resolved]
  - Spinal disorder [Not Recovered/Not Resolved]
  - Neck pain [Not Recovered/Not Resolved]
  - Device failure [None]
  - Herpes zoster [Unknown]
  - Weight decreased [Unknown]
  - Device damage [None]
  - No therapeutic response [Not Recovered/Not Resolved]
  - General physical health deterioration [Not Recovered/Not Resolved]
  - Spinal cord herniation [Not Recovered/Not Resolved]
